FAERS Safety Report 5214240-5 (Version None)
Quarter: 2007Q1

REPORT INFORMATION
  Report Type: 
  Country: None (occurrence: None)
  Receive Date: 20070122
  Receipt Date: 20070116
  Transmission Date: 20070707
  Serious: Yes (Other)
  Sender: FDA-Public Use
  Company Number: FR-BRISTOL-MYERS SQUIBB COMPANY-13615604

PATIENT
  Age: 76 Year
  Sex: Female
  Weight: 55 kg

DRUGS (8)
  1. TAXOL [Suspect]
     Indication: PERITONEAL CARCINOMA
     Route: 042
     Dates: start: 20060305, end: 20060305
  2. PREVISCAN [Concomitant]
     Indication: PHLEBITIS
     Dates: start: 20040720
  3. FOSINOPRIL SODIUM AND HYDROCHLOROTHIAZIDE [Concomitant]
     Dates: end: 20060313
  4. NEORECORMON [Concomitant]
     Dates: start: 20060109, end: 20060313
  5. ACETAMINOPHEN W/ PROPOXYPHENE HCL [Concomitant]
     Indication: PAIN
     Dates: start: 20040901
  6. ZANTAC [Concomitant]
     Indication: PREMEDICATION
     Route: 042
  7. POLARAMINE [Concomitant]
     Indication: PREMEDICATION
     Route: 042
  8. SOLU-MEDROL [Concomitant]
     Indication: PREMEDICATION
     Route: 042

REACTIONS (1)
  - SYSTEMIC LUPUS ERYTHEMATOSUS [None]
